FAERS Safety Report 7485338-6 (Version None)
Quarter: 2011Q2

REPORT INFORMATION
  Report Type: 
  Country: None (occurrence: None)
  Receive Date: 20110517
  Receipt Date: 20101217
  Transmission Date: 20111010
  Serious: Yes (Life-Threatening, Hospitalization)
  Sender: FDA-Public Use
  Company Number: DE-BAYER-2010-005223

PATIENT
  Age: 22 Year
  Sex: Female

DRUGS (1)
  1. YAZ [Suspect]
     Indication: PRODUCT USED FOR UNKNOWN INDICATION
     Dosage: UNK
     Route: 048
     Dates: start: 20100801

REACTIONS (15)
  - HEADACHE [None]
  - PYREXIA [None]
  - VERTIGO [None]
  - DISTURBANCE IN ATTENTION [None]
  - MENTAL DISORDER [None]
  - NOCTURNAL DYSPNOEA [None]
  - DYSPNOEA [None]
  - CHILLS [None]
  - ASTHENIA [None]
  - CHEST PAIN [None]
  - DYSPNOEA EXERTIONAL [None]
  - MEMORY IMPAIRMENT [None]
  - FATIGUE [None]
  - PULMONARY EMBOLISM [None]
  - GENERAL PHYSICAL HEALTH DETERIORATION [None]
